FAERS Safety Report 7775944-3 (Version None)
Quarter: 2011Q3

REPORT INFORMATION
  Report Type: 
  Country: None (occurrence: None)
  Receive Date: 20110923
  Receipt Date: 20110919
  Transmission Date: 20111222
  Serious: Yes (Hospitalization)
  Sender: FDA-Public Use
  Company Number: ZA-MERCK-1109ZAF00010

PATIENT
  Age: 41 Year
  Sex: Female

DRUGS (2)
  1. DIETARY SUPPLEMENT (UNSPECIFIED) [Suspect]
     Indication: WEIGHT DECREASED
     Route: 048
  2. VYTORIN [Suspect]
     Indication: BLOOD CHOLESTEROL
     Route: 048

REACTIONS (4)
  - BLOOD URINE PRESENT [None]
  - HAEMOGLOBIN URINE [None]
  - MYALGIA [None]
  - DRUG INTERACTION [None]
